FAERS Safety Report 7078686-5 (Version None)
Quarter: 2010Q4

REPORT INFORMATION
  Report Type: 
  Country: None (occurrence: None)
  Receive Date: 20101101
  Receipt Date: 20101101
  Transmission Date: 20110411
  Serious: Yes (Hospitalization)
  Sender: FDA-Public Use
  Company Number: None

PATIENT
  Sex: Male
  Weight: 85.9 kg

DRUGS (7)
  1. BEVACIZUMAB [Suspect]
     Indication: RENAL CELL CARCINOMA
     Dosage: 1 Q 21 DAYS IV
     Route: 042
     Dates: start: 20100608, end: 20100924
  2. BORTIZOMIB [Suspect]
     Dosage: DAYS 1+8 OF 21 DAY CYC IV
     Route: 042
     Dates: start: 20100608, end: 20101001
  3. DILAUDID [Concomitant]
  4. IBUPROFEN [Concomitant]
  5. PRILOSEC [Concomitant]
  6. PRIMIDONE [Concomitant]
  7. ZONEGRAN [Concomitant]

REACTIONS (6)
  - CHEST PAIN [None]
  - CONVULSION [None]
  - DIZZINESS [None]
  - DYSPNOEA [None]
  - HAEMOGLOBIN DECREASED [None]
  - HAEMORRHOIDS [None]
